FAERS Safety Report 9271093 (Version 1)
Quarter: 2013Q2

REPORT INFORMATION
  Report Type: Spontaneous
  Country: US (occurrence: US)
  Receive Date: 20130506
  Receipt Date: 20130506
  Transmission Date: 20140414
  Serious: Yes (Hospitalization)
  Sender: FDA-Public Use
  Company Number: US-BAYER-2013-054669

PATIENT
  Age: 42 Year
  Sex: Female

DRUGS (8)
  1. GIANVI [Suspect]
  2. YAZ [Suspect]
  3. FUROSEMIDE [Concomitant]
  4. LEVOXYL [Concomitant]
  5. AZITHROMYCIN [Concomitant]
  6. LEVOFLOXACIN [Concomitant]
  7. CLARITIN [Concomitant]
  8. LEVOTHYROXINE SODIUM [Concomitant]

REACTIONS (1)
  - Pulmonary embolism [None]
